FAERS Safety Report 25453738 (Version 1)
Quarter: 2025Q2

REPORT INFORMATION
  Report Type: Spontaneous
  Country: US (occurrence: US)
  Receive Date: 20250619
  Receipt Date: 20250619
  Transmission Date: 20250716
  Serious: Yes (Other)
  Sender: NOVO NORDISK
  Company Number: US-NOVOPROD-1457472

PATIENT
  Age: 82 Year
  Sex: Female

DRUGS (1)
  1. INSULIN ASPART [Suspect]
     Active Substance: INSULIN ASPART
     Indication: Type 2 diabetes mellitus
     Dosage: 150 IU, QD 24 UNITS IN MORNING/LUNCH, 26 UNITS AT SUPPER, 100 UNITS AT BEDTIME)
     Route: 058
     Dates: start: 2010

REACTIONS (2)
  - Brain operation [Unknown]
  - Headache [Recovered/Resolved]

NARRATIVE: CASE EVENT DATE: 20250501
